FAERS Safety Report 14961828 (Version 3)
Quarter: 2018Q2

REPORT INFORMATION
  Report Type: Spontaneous
  Country: MT (occurrence: MT)
  Receive Date: 20180601
  Receipt Date: 20180628
  Transmission Date: 20180711
  Serious: Yes (Other)
  Sender: FDA-Public Use
  Company Number: MT-BRISTOL-MYERS SQUIBB COMPANY-BMS-2018-047954

PATIENT
  Age: 37 Year
  Sex: Female

DRUGS (1)
  1. DASATINIB. [Suspect]
     Active Substance: DASATINIB
     Indication: CHRONIC MYELOID LEUKAEMIA
     Dosage: 100 MG, UNK
     Route: 065
     Dates: start: 200908, end: 20180522

REACTIONS (3)
  - Pulmonary arterial hypertension [Recovering/Resolving]
  - Dyspnoea exertional [Unknown]
  - Pulmonary artery stenosis [Unknown]

NARRATIVE: CASE EVENT DATE: 201805
